FAERS Safety Report 5701656-3 (Version None)
Quarter: 2008Q2

REPORT INFORMATION
  Report Type: 
  Country: None (occurrence: None)
  Receive Date: 20080409
  Receipt Date: 20080409
  Transmission Date: 20081010
  Serious: Yes (Life-Threatening)
  Sender: FDA-Public Use
  Company Number: None

PATIENT
  Age: 41 Year
  Sex: Female
  Weight: 57.6068 kg

DRUGS (1)
  1. ORTHO EVRA [Suspect]
     Indication: CONTRACEPTION
     Dosage: 1 PATCH CHANGE EVERY WEEK
     Dates: start: 20040101, end: 20070529

REACTIONS (7)
  - ECONOMIC PROBLEM [None]
  - HEADACHE [None]
  - LEGAL PROBLEM [None]
  - MOBILITY DECREASED [None]
  - PAIN [None]
  - PHARMACEUTICAL PRODUCT COMPLAINT [None]
  - PULMONARY THROMBOSIS [None]
